FAERS Safety Report 15117419 (Version 1)
Quarter: 2018Q3

REPORT INFORMATION
  Report Type: Report from Study
  Country: MA (occurrence: MA)
  Receive Date: 20180706
  Receipt Date: 20180706
  Transmission Date: 20181010
  Serious: Yes (Death, Hospitalization, Other)
  Sender: FDA-Public Use
  Company Number: MA-MYLANLABS-2018M1048287

PATIENT
  Age: 26 Year

DRUGS (1)
  1. ALLOPURINOL. [Suspect]
     Active Substance: ALLOPURINOL
     Indication: HYPERURICAEMIA
     Route: 065

REACTIONS (3)
  - Toxic epidermal necrolysis [Fatal]
  - Septic shock [Fatal]
  - Intentional product misuse [Fatal]
